FAERS Safety Report 17151797 (Version 1)
Quarter: 2019Q4

REPORT INFORMATION
  Report Type: Spontaneous
  Country: US (occurrence: US)
  Receive Date: 20191212
  Receipt Date: 20191212
  Transmission Date: 20200122
  Serious: Yes (Other)
  Sender: FDA-Public Use
  Company Number: None

PATIENT
  Age: 51 Year
  Sex: Female

DRUGS (2)
  1. MAGNESIUM TAB 30MG [Concomitant]
     Dates: start: 20181120
  2. NEUPOGEN [Suspect]
     Active Substance: FILGRASTIM
     Indication: AGRANULOCYTOSIS
     Dosage: ?          OTHER FREQUENCY:2 DYS PER 6DYS CYC;?
     Route: 058
     Dates: start: 20181009

REACTIONS (1)
  - Recurrent cancer [None]
